FAERS Safety Report 10085628 (Version 1)
Quarter: 2014Q2

REPORT INFORMATION
  Report Type: Spontaneous
  Country: FR (occurrence: FR)
  Receive Date: 20140418
  Receipt Date: 20140418
  Transmission Date: 20141212
  Serious: Yes (Hospitalization)
  Sender: FDA-Public Use
  Company Number: FR-ASTRAZENECA-2014SE26107

PATIENT
  Age: 1067 Month
  Sex: Female

DRUGS (2)
  1. BRILIQUE [Suspect]
     Indication: ANGINA PECTORIS
     Route: 048
     Dates: start: 201312, end: 201402
  2. KARDEGIC [Concomitant]
     Indication: ANGINA PECTORIS
     Route: 048
     Dates: start: 201312

REACTIONS (2)
  - Anaemia [Recovered/Resolved]
  - Rectal haemorrhage [Recovered/Resolved]
